FAERS Safety Report 4872098-8 (Version None)
Quarter: 2005Q4

REPORT INFORMATION
  Report Type: 
  Country: None (occurrence: None)
  Receive Date: 20051230
  Receipt Date: 20051219
  Transmission Date: 20060501
  Serious: Yes (Hospitalization)
  Sender: FDA-Public Use
  Company Number: NO-2005-027129

PATIENT
  Age: 17 Year
  Sex: Female

DRUGS (2)
  1. YASMIN [Suspect]
     Indication: CONTRACEPTION
     Dosage: 1 TAB(S), 1X/21 DAYS, ORAL
     Route: 048
  2. ROACCUTAN [Suspect]
     Indication: ACNE
     Dosage: STARTED WT 40MG/DAY, THEN 80MG/D
     Dates: start: 20050801

REACTIONS (4)
  - CEREBRAL INFARCTION [None]
  - GRAND MAL CONVULSION [None]
  - SYNCOPE [None]
  - VENOUS THROMBOSIS [None]
